FAERS Safety Report 8152772-0 (Version None)
Quarter: 2012Q1

REPORT INFORMATION
  Report Type: 
  Country: None (occurrence: None)
  Receive Date: 20120103
  Receipt Date: 20110922
  Transmission Date: 20120608
  Serious: No
  Sender: FDA-Public Use
  Company Number: AE-2011-000663

PATIENT
  Age: 64 Year
  Sex: Male
  Weight: 63.5036 kg

DRUGS (5)
  1. RIBAVIRIN [Concomitant]
  2. DIOVAN [Concomitant]
  3. PEGASYS [Concomitant]
  4. TRICOR [Concomitant]
  5. INCIVEK [Suspect]
     Dosage: 2250 MG (750 MG, 3 IN 1 D)
     Dates: start: 20110712

REACTIONS (6)
  - BLOOD PRESSURE DECREASED [None]
  - DIZZINESS [None]
  - ASTHENIA [None]
  - ACNE [None]
  - RASH PRURITIC [None]
  - BLISTER [None]
